FAERS Safety Report 7998143-9 (Version None)
Quarter: 2011Q4

REPORT INFORMATION
  Report Type: 
  Country: None (occurrence: None)
  Receive Date: 20111221
  Receipt Date: 20110307
  Transmission Date: 20120403
  Serious: No
  Sender: FDA-Public Use
  Company Number: US-GLAXOSMITHKLINE-A0916974A

PATIENT
  Age: 42 Year
  Sex: Female

DRUGS (4)
  1. LOVAZA [Suspect]
     Indication: BLOOD CHOLESTEROL DECREASED
     Dosage: 4CAPL PER DAY
     Route: 048
     Dates: start: 20101101
  2. METFORMIN HCL [Concomitant]
  3. VITAMIN D [Concomitant]
  4. HYZAAR [Concomitant]

REACTIONS (3)
  - PAIN [None]
  - FATIGUE [None]
  - INFLUENZA LIKE ILLNESS [None]
